FAERS Safety Report 14107137 (Version 1)
Quarter: 2017Q4

REPORT INFORMATION
  Report Type: Spontaneous
  Country: US (occurrence: None)
  Receive Date: 20171017
  Receipt Date: 20171017
  Transmission Date: 20180321
  Serious: Yes (Other)
  Sender: FDA-Public Use
  Company Number: None

PATIENT
  Age: 45 Year
  Sex: Female
  Weight: 62.6 kg

DRUGS (1)
  1. BIO T HORMONE REPLACEMENT THERAPY (ESTROGENS\TESTOSTERONE [Suspect]
     Active Substance: ESTROGENS\TESTOSTERONE
     Indication: PRODUCT USED FOR UNKNOWN INDICATION
     Route: 058
     Dates: start: 20170425

REACTIONS (16)
  - Libido increased [None]
  - Irritability [None]
  - Mood swings [None]
  - Fibromyalgia [None]
  - Anger [None]
  - Scar [None]
  - Psychomotor hyperactivity [None]
  - Pruritus [None]
  - Hair growth abnormal [None]
  - Alopecia [None]
  - Bone pain [None]
  - Breast pain [None]
  - Asthenia [None]
  - Nervousness [None]
  - Depression [None]
  - Migraine [None]

NARRATIVE: CASE EVENT DATE: 20170425
